FAERS Safety Report 11218941 (Version 1)
Quarter: 2015Q2

REPORT INFORMATION
  Report Type: Spontaneous
  Country: US (occurrence: US)
  Receive Date: 20150625
  Receipt Date: 20150625
  Transmission Date: 20150821
  Serious: Yes (Other)
  Sender: FDA-Public Use
  Company Number: US-ELI_LILLY_AND_COMPANY-US201506006834

PATIENT
  Sex: Female

DRUGS (2)
  1. CYMBALTA [Suspect]
     Active Substance: DULOXETINE HYDROCHLORIDE
     Indication: PAIN
     Dosage: UNK UNK, UNKNOWN
     Route: 065
     Dates: start: 200401, end: 201408
  2. CYMBALTA [Suspect]
     Active Substance: DULOXETINE HYDROCHLORIDE
     Indication: DEPRESSION

REACTIONS (7)
  - Diarrhoea [Unknown]
  - Influenza like illness [Unknown]
  - Vomiting [Unknown]
  - Drug withdrawal syndrome [Unknown]
  - Skin burning sensation [Unknown]
  - Paraesthesia [Unknown]
  - Fatigue [Unknown]
